FAERS Safety Report 21177072 (Version 1)
Quarter: 2022Q3

REPORT INFORMATION
  Report Type: Report from Study
  Country: AR (occurrence: AR)
  Receive Date: 20220805
  Receipt Date: 20220805
  Transmission Date: 20221027
  Serious: Yes (Death, Other)
  Sender: FDA-Public Use
  Company Number: AR-ABBVIE-22K-007-4393192-00

PATIENT
  Age: 74 Year
  Sex: Male

DRUGS (1)
  1. HUMIRA [Suspect]
     Active Substance: ADALIMUMAB
     Indication: Crohn^s disease
     Route: 058
     Dates: start: 20171114

REACTIONS (3)
  - Pancreatic carcinoma [Fatal]
  - Pancreatic injury [Unknown]
  - Liver injury [Unknown]

NARRATIVE: CASE EVENT DATE: 20220429
